FAERS Safety Report 17240477 (Version 7)
Quarter: 2020Q2

REPORT INFORMATION
  Report Type: Spontaneous
  Country: US (occurrence: US)
  Receive Date: 20200107
  Receipt Date: 20200512
  Transmission Date: 20200713
  Serious: Yes (Other)
  Sender: FDA-Public Use
  Company Number: US-AKCEA THERAPEUTICS-2020IS001005

PATIENT

DRUGS (4)
  1. PROGRAF [Concomitant]
     Active Substance: TACROLIMUS
     Indication: PRODUCT USED FOR UNKNOWN INDICATION
     Dosage: UNK
     Route: 065
  2. CELLCEPT [Concomitant]
     Active Substance: MYCOPHENOLATE MOFETIL\MYCOPHENOLATE MOFETIL HYDROCHLORIDE
     Indication: PRODUCT USED FOR UNKNOWN INDICATION
     Dosage: UNK
     Route: 065
  3. PREDNISONE. [Concomitant]
     Active Substance: PREDNISONE
     Indication: PRODUCT USED FOR UNKNOWN INDICATION
     Dosage: UNK
     Route: 065
  4. TEGSEDI [Suspect]
     Active Substance: INOTERSEN SODIUM
     Indication: HEREDITARY NEUROPATHIC AMYLOIDOSIS
     Dosage: 284 MG, QW
     Route: 058
     Dates: start: 2019, end: 20200121

REACTIONS (14)
  - Renal tubular necrosis [Unknown]
  - Proteinuria [Recovered/Resolved]
  - Glomerulonephritis [Recovering/Resolving]
  - Blood creatine increased [Recovering/Resolving]
  - Nephrolithiasis [Unknown]
  - Renal disorder [Recovering/Resolving]
  - Chronic kidney disease [Unknown]
  - Superficial vein prominence [Not Recovered/Not Resolved]
  - Urine protein/creatinine ratio increased [Recovering/Resolving]
  - Glomerular filtration rate decreased [Recovering/Resolving]
  - Urinary tract infection [Recovered/Resolved]
  - Thrombocytopenia [Recovered/Resolved]
  - Blood pressure increased [Unknown]
  - Contusion [Not Recovered/Not Resolved]

NARRATIVE: CASE EVENT DATE: 20191213
